FAERS Safety Report 7920321-5 (Version None)
Quarter: 2011Q4

REPORT INFORMATION
  Report Type: 
  Country: None (occurrence: None)
  Receive Date: 20111117
  Receipt Date: 20111107
  Transmission Date: 20120403
  Serious: Yes (Hospitalization)
  Sender: FDA-Public Use
  Company Number: US-BAYER-2011-028592

PATIENT
  Age: 41 Year
  Sex: Female

DRUGS (3)
  1. YAZ [Suspect]
     Indication: CONTRACEPTION
     Dosage: UNK
     Dates: start: 20060501, end: 20090201
  2. ASTHMA INHALER [Concomitant]
     Indication: ASTHMA
     Dosage: UNK UNK, PRN
     Route: 048
     Dates: start: 20000101, end: 20090101
  3. ZYRTEC-D 12 HOUR [Concomitant]
     Indication: SINUS DISORDER
     Dosage: UNK UNK, PRN
     Route: 048

REACTIONS (8)
  - FEAR [None]
  - COLITIS ISCHAEMIC [None]
  - THROMBOSIS [None]
  - INJURY [None]
  - PAIN [None]
  - ANXIETY [None]
  - EMOTIONAL DISTRESS [None]
  - PSYCHOLOGICAL TRAUMA [None]
